FAERS Safety Report 10991492 (Version 2)
Quarter: 2015Q2

REPORT INFORMATION
  Report Type: Spontaneous
  Country: US (occurrence: US)
  Receive Date: 20150406
  Receipt Date: 20150430
  Transmission Date: 20150821
  Serious: No
  Sender: FDA-Public Use
  Company Number: US-GLAXOSMITHKLINE-US2015044984

PATIENT
  Sex: Male
  Weight: 138.78 kg

DRUGS (13)
  1. TANZEUM [Suspect]
     Active Substance: ALBIGLUTIDE
     Indication: DIABETES MELLITUS
     Dosage: 30 MG, U
     Route: 058
     Dates: start: 20150316, end: 20150318
  2. BUTALBITAL [Concomitant]
     Active Substance: BUTALBITAL
  3. CARVEDILOL. [Concomitant]
     Active Substance: CARVEDILOL
  4. NITROSTAT [Concomitant]
     Active Substance: NITROGLYCERIN
  5. FARXIGA [Concomitant]
     Active Substance: DAPAGLIFLOZIN PROPANEDIOL
  6. RANEXA [Concomitant]
     Active Substance: RANOLAZINE
  7. EFFIENT [Concomitant]
     Active Substance: PRASUGREL HYDROCHLORIDE
  8. LIPITOR [Concomitant]
     Active Substance: ATORVASTATIN CALCIUM
  9. SUMATRIPTAN. [Concomitant]
     Active Substance: SUMATRIPTAN
  10. ACETAMINOPHEN + CAFFEINE [Concomitant]
     Active Substance: ACETAMINOPHEN\CAFFEINE
  11. LISINOPRIL HCTZ [Concomitant]
     Active Substance: HYDROCHLOROTHIAZIDE\LISINOPRIL
  12. HUMALOG [Concomitant]
     Active Substance: INSULIN LISPRO
  13. LANTUS [Concomitant]
     Active Substance: INSULIN GLARGINE

REACTIONS (2)
  - Migraine [Unknown]
  - Headache [Not Recovered/Not Resolved]
